FAERS Safety Report 16361380 (Version 1)
Quarter: 2019Q2

REPORT INFORMATION
  Report Type: Spontaneous
  Country: CA (occurrence: CA)
  Receive Date: 20190528
  Receipt Date: 20190528
  Transmission Date: 20190711
  Serious: Yes (Disabling)
  Sender: FDA-Public Use
  Company Number: CA-PFIZER INC-2019218161

PATIENT
  Age: 81 Year
  Sex: Female
  Weight: 45.35 kg

DRUGS (1)
  1. LYRICA [Suspect]
     Active Substance: PREGABALIN
     Indication: SCIATICA
     Dosage: 50 MG, 1X/DAY
     Route: 065

REACTIONS (3)
  - Muscular weakness [Recovered/Resolved]
  - Pruritus [Recovered/Resolved]
  - Pallor [Recovered/Resolved]
